FAERS Safety Report 18776134 (Version 4)
Quarter: 2021Q2

REPORT INFORMATION
  Report Type: Report from Study
  Country: US (occurrence: US)
  Receive Date: 20210122
  Receipt Date: 20210426
  Transmission Date: 20210717
  Serious: Yes (Death, Hospitalization)
  Sender: FDA-Public Use
  Company Number: NVSC2021US013889

PATIENT
  Sex: Male
  Weight: 178 kg

DRUGS (2)
  1. ENTRESTO [Suspect]
     Active Substance: SACUBITRIL\VALSARTAN
     Dosage: 100 MG, BID (45/51 MG)
     Route: 048
     Dates: start: 20170720
  2. ENTRESTO [Suspect]
     Active Substance: SACUBITRIL\VALSARTAN
     Indication: CARDIAC FAILURE CHRONIC
     Dosage: 100 MG (49/51 MG), BID
     Route: 048
     Dates: start: 20170630

REACTIONS (6)
  - Confusional state [Unknown]
  - Cardiac failure congestive [Fatal]
  - Mouth swelling [Unknown]
  - Incontinence [Unknown]
  - Chronic obstructive pulmonary disease [Fatal]
  - Dysphagia [Unknown]
